FAERS Safety Report 11887549 (Version 1)
Quarter: 2016Q1

REPORT INFORMATION
  Report Type: Report from Study
  Country: VE (occurrence: VE)
  Receive Date: 20160105
  Receipt Date: 20160105
  Transmission Date: 20160526
  Serious: Yes (Other)
  Sender: FDA-Public Use
  Company Number: PHHY2015VE172179

PATIENT
  Sex: Male

DRUGS (5)
  1. COZAAR [Concomitant]
     Active Substance: LOSARTAN POTASSIUM
     Indication: HYPERTENSION
     Dosage: 50 MG, QD
     Route: 048
  2. DESELEX [Concomitant]
     Indication: HYPERSENSITIVITY
     Dosage: UNK
     Route: 065
     Dates: start: 20100721
  3. IMATINIB [Suspect]
     Active Substance: IMATINIB
     Indication: CHRONIC MYELOID LEUKAEMIA
     Route: 065
  4. GLIVEC [Suspect]
     Active Substance: IMATINIB MESYLATE
     Indication: CHRONIC MYELOID LEUKAEMIA
     Dosage: 400 MG, QD
     Route: 048
     Dates: start: 2010, end: 201506
  5. BENICAR [Concomitant]
     Active Substance: OLMESARTAN MEDOXOMIL
     Indication: HYPERTENSION
     Dosage: 1 DF, QD
     Route: 065

REACTIONS (7)
  - Hernia [Unknown]
  - Malaise [Unknown]
  - Tachycardia [Unknown]
  - Pulse abnormal [Unknown]
  - Haemoglobin decreased [Unknown]
  - Headache [Not Recovered/Not Resolved]
  - Influenza [Unknown]
